FAERS Safety Report 13821846 (Version 1)
Quarter: 2017Q3

REPORT INFORMATION
  Report Type: Spontaneous
  Country: FR (occurrence: FR)
  Receive Date: 20170801
  Receipt Date: 20170801
  Transmission Date: 20171127
  Serious: Yes (Other)
  Sender: FDA-Public Use
  Company Number: FR-ACCORD-056453

PATIENT
  Age: 52 Year
  Sex: Female

DRUGS (6)
  1. COLCHICINE. [Suspect]
     Active Substance: COLCHICINE
     Indication: POLYARTERITIS NODOSA
     Dates: start: 2010
  2. PREDNISOLONE. [Suspect]
     Active Substance: PREDNISOLONE
     Indication: POLYARTERITIS NODOSA
     Dosage: AGGRESSIVE WITH 0.7 MG/KG/DAY
  3. AZATHIOPRINE. [Suspect]
     Active Substance: AZATHIOPRINE
     Indication: POLYARTERITIS NODOSA
  4. METHOTREXATE. [Suspect]
     Active Substance: METHOTREXATE
     Indication: POLYARTERITIS NODOSA
  5. CYCLOPHOSPHAMIDE. [Suspect]
     Active Substance: CYCLOPHOSPHAMIDE
     Indication: POLYARTERITIS NODOSA
     Dosage: 3 MG/KG/DAY, PULSE THERAPY
     Route: 048
  6. DAPSONE. [Suspect]
     Active Substance: DAPSONE
     Indication: POLYARTERITIS NODOSA
     Dates: start: 2010

REACTIONS (3)
  - Haematotoxicity [Unknown]
  - Off label use [Unknown]
  - Drug ineffective [Unknown]
